FAERS Safety Report 15687796 (Version 1)
Quarter: 2018Q4

REPORT INFORMATION
  Report Type: Spontaneous
  Country: US (occurrence: US)
  Receive Date: 20181205
  Receipt Date: 20181205
  Transmission Date: 20190205
  Serious: Yes (Death)
  Sender: FDA-Public Use
  Company Number: US-ROCHE-2137869

PATIENT
  Age: 86 Year
  Sex: Female

DRUGS (3)
  1. HEPARIN [Suspect]
     Active Substance: HEPARIN SODIUM
     Dosage: 8 UNITS/KG/HR
     Route: 042
  2. ACTILYSE [Suspect]
     Active Substance: ALTEPLASE
     Indication: PULMONARY EMBOLISM
     Dosage: 1 MG/HR
     Route: 065
  3. HEPARIN [Suspect]
     Active Substance: HEPARIN SODIUM
     Indication: PULMONARY EMBOLISM
     Dosage: INTRAVENOUS HEPARIN BOLUS FOLLOWED BY HEPARIN (100 UNITS/ML IN SODIUM CHLORIDE 0.9%) INFUSION AT THE
     Route: 042

REACTIONS (1)
  - Cerebral haemorrhage [Fatal]
